FAERS Safety Report 16826332 (Version 3)
Quarter: 2021Q2

REPORT INFORMATION
  Report Type: Spontaneous
  Country: US (occurrence: US)
  Receive Date: 20190919
  Receipt Date: 20210622
  Transmission Date: 20210716
  Serious: Yes (Death, Other)
  Sender: FDA-Public Use
  Company Number: US-ASTRAZENECA-2019SF31721

PATIENT
  Sex: Male
  Weight: 139.7 kg

DRUGS (22)
  1. QUINAPRIL. [Concomitant]
     Active Substance: QUINAPRIL
     Route: 065
     Dates: start: 20090211
  2. ASPIRIN. [Concomitant]
     Active Substance: ASPIRIN
     Route: 065
     Dates: start: 20090109
  3. NASONEX [Concomitant]
     Active Substance: MOMETASONE FUROATE
     Dates: start: 20090109
  4. INDOMETHACIN. [Concomitant]
     Active Substance: INDOMETHACIN
     Dates: start: 20090109
  5. METOPROLOL. [Concomitant]
     Active Substance: METOPROLOL
     Indication: BLOOD PRESSURE MEASUREMENT
     Route: 065
     Dates: start: 2015, end: 2018
  6. AMLODIPINE BESYLATE. [Concomitant]
     Active Substance: AMLODIPINE BESYLATE
     Dates: start: 20090109
  7. VITAMIN D [Concomitant]
     Active Substance: VITAMIN D NOS
     Dates: start: 20090109
  8. NEXIUM [Suspect]
     Active Substance: ESOMEPRAZOLE MAGNESIUM
     Indication: GASTROOESOPHAGEAL REFLUX DISEASE
     Route: 048
     Dates: start: 2008, end: 2011
  9. POTASSIUM CHLORIDE. [Concomitant]
     Active Substance: POTASSIUM CHLORIDE
     Route: 065
     Dates: start: 20090211
  10. TRICOR [Concomitant]
     Active Substance: FENOFIBRATE
     Route: 065
     Dates: start: 20090211
  11. MEDROL [Concomitant]
     Active Substance: METHYLPREDNISOLONE
     Route: 065
     Dates: start: 20090109
  12. FOLIC ACID. [Concomitant]
     Active Substance: FOLIC ACID
     Dates: start: 20090109
  13. CAPSAICIN. [Concomitant]
     Active Substance: CAPSAICIN
     Dates: start: 20090109
  14. NEXIUM [Suspect]
     Active Substance: ESOMEPRAZOLE MAGNESIUM
     Indication: GASTROOESOPHAGEAL REFLUX DISEASE
     Route: 048
     Dates: start: 200801, end: 201101
  15. CRESTOR [Concomitant]
     Active Substance: ROSUVASTATIN CALCIUM
     Route: 065
     Dates: start: 20090211
  16. ATORVASTATIN [Concomitant]
     Active Substance: ATORVASTATIN
     Indication: BLOOD CHOLESTEROL
     Route: 065
     Dates: start: 2014, end: 2018
  17. PROVENTIL HFA [Concomitant]
     Active Substance: ALBUTEROL SULFATE
     Indication: ASTHMA
     Route: 065
     Dates: start: 2016, end: 2017
  18. ACETAMINOPHEN. [Concomitant]
     Active Substance: ACETAMINOPHEN
     Indication: ANALGESIC THERAPY
     Route: 065
     Dates: start: 2012, end: 2016
  19. COLCHICINE. [Concomitant]
     Active Substance: COLCHICINE
     Route: 065
     Dates: start: 20090109
  20. IRON [Concomitant]
     Active Substance: IRON
     Dates: start: 20090109
  21. PLAVIX [Concomitant]
     Active Substance: CLOPIDOGREL BISULFATE
     Route: 065
     Dates: start: 20090109
  22. PRANDIN [Concomitant]
     Active Substance: REPAGLINIDE
     Dates: start: 20090109

REACTIONS (3)
  - Renal injury [Unknown]
  - Chronic kidney disease [Unknown]
  - Renal failure [Unknown]
